FAERS Safety Report 18468603 (Version 1)
Quarter: 2020Q4

REPORT INFORMATION
  Report Type: Report from Study
  Country: None (occurrence: BR)
  Receive Date: 20201105
  Receipt Date: 20201105
  Transmission Date: 20210114
  Serious: Yes (Disabling)
  Sender: FDA-Public Use
  Company Number: BR-ABBVIE-20K-020-3632608-00

PATIENT
  Age: 37 Year
  Sex: Female
  Weight: 100 kg

DRUGS (5)
  1. HUMIRA [Suspect]
     Active Substance: ADALIMUMAB
     Indication: HIDRADENITIS
     Dosage: LOADING DOSE WEEK 00
     Route: 058
     Dates: start: 20191119, end: 20191119
  2. HUMIRA [Suspect]
     Active Substance: ADALIMUMAB
     Dosage: LOADING DOSE WEEK 02
     Route: 058
     Dates: start: 2019, end: 2019
  3. DEPO-PROVERA [Concomitant]
     Active Substance: MEDROXYPROGESTERONE ACETATE
     Indication: CONTRACEPTION
  4. HUMIRA [Suspect]
     Active Substance: ADALIMUMAB
     Dosage: LOADING DOSE WEEK 04
     Route: 058
     Dates: start: 2019, end: 2019
  5. HUMIRA [Suspect]
     Active Substance: ADALIMUMAB
     Route: 058
     Dates: end: 20200324

REACTIONS (14)
  - Immunodeficiency [Unknown]
  - Wound haemorrhage [Unknown]
  - Wound [Unknown]
  - Injury [Unknown]
  - Hidradenitis [Unknown]
  - Asthenia [Unknown]
  - Back injury [Not Recovered/Not Resolved]
  - Skin discolouration [Not Recovered/Not Resolved]
  - Nausea [Recovered/Resolved]
  - Somnolence [Recovered/Resolved]
  - Pain [Not Recovered/Not Resolved]
  - Wound complication [Unknown]
  - Loss of personal independence in daily activities [Unknown]
  - Wound secretion [Unknown]

NARRATIVE: CASE EVENT DATE: 20200408
